FAERS Safety Report 15359434 (Version 1)
Quarter: 2018Q4

REPORT INFORMATION
  Report Type: Spontaneous
  Country: GB (occurrence: GB)
  Receive Date: 20180907
  Receipt Date: 20180907
  Transmission Date: 20190204
  Serious: Yes (Other)
  Sender: FDA-Public Use
  Company Number: GB-AUROBINDO-AUR-APL-2018-036474

PATIENT
  Age: 79 Year
  Sex: Female
  Weight: 64 kg

DRUGS (4)
  1. MORPHINE [Concomitant]
     Active Substance: MORPHINE
     Indication: NEURALGIA
  2. DULOXETINE 20 MG GASTRO RESISTANT CAPSULES [Suspect]
     Active Substance: DULOXETINE
     Indication: PAIN
     Dosage: 20 MILLIGRAM, DAILY
     Route: 065
     Dates: start: 20180710, end: 20180710
  3. ASPIRIN                            /00002701/ [Concomitant]
     Active Substance: ASPIRIN
     Indication: PRODUCT USED FOR UNKNOWN INDICATION
  4. AMLODIPINE [Concomitant]
     Active Substance: AMLODIPINE BESYLATE
     Indication: BLOOD PRESSURE MEASUREMENT

REACTIONS (6)
  - Malaise [Recovering/Resolving]
  - Suicidal ideation [Recovering/Resolving]
  - Drug ineffective [Unknown]
  - Somnolence [Recovering/Resolving]
  - Hallucination, visual [Recovering/Resolving]
  - Nervousness [Recovering/Resolving]

NARRATIVE: CASE EVENT DATE: 20180710
